FAERS Safety Report 19798669 (Version 1)
Quarter: 2021Q3

REPORT INFORMATION
  Report Type: Spontaneous
  Country: CN (occurrence: CN)
  Receive Date: 20210907
  Receipt Date: 20210907
  Transmission Date: 20211014
  Serious: Yes (Other)
  Sender: FDA-Public Use
  Company Number: CN-PFIZER INC-202101119510

PATIENT
  Age: 53 Year
  Sex: Female
  Weight: 52 kg

DRUGS (2)
  1. AI FEN [ACECLOFENAC] [Concomitant]
     Indication: BACK PAIN
     Dosage: 100 MG, 2X/DAY
     Route: 048
     Dates: start: 20210825, end: 20210826
  2. LYRICA [Suspect]
     Active Substance: PREGABALIN
     Indication: POST HERPETIC NEURALGIA
     Dosage: 75 MG, 2X/DAY
     Route: 048
     Dates: start: 20210825, end: 20210826

REACTIONS (3)
  - Dizziness [Recovering/Resolving]
  - Fall [Unknown]
  - Somnolence [Unknown]

NARRATIVE: CASE EVENT DATE: 20210826
